FAERS Safety Report 4478772-X (Version None)
Quarter: 2004Q4

REPORT INFORMATION
  Report Type: 
  Country: None (occurrence: None)
  Receive Date: 20040923
  Receipt Date: 20040618
  Transmission Date: 20050328
  Serious: No
  Sender: FDA-Public Use
  Company Number: USA040566586

PATIENT
  Age: 81 Year
  Sex: Female
  Weight: 65 kg

DRUGS (2)
  1. FORTEO [Suspect]
     Indication: OSTEOPOROSIS
     Dates: start: 20040412
  2. CITRACAL WITH VITAMIN D [Concomitant]

REACTIONS (5)
  - BACK PAIN [None]
  - BONE PAIN [None]
  - FATIGUE [None]
  - INJECTION SITE HAEMORRHAGE [None]
  - MUSCULOSKELETAL DISCOMFORT [None]
